FAERS Safety Report 17527747 (Version 3)
Quarter: 2020Q2

REPORT INFORMATION
  Report Type: Spontaneous
  Country: CH (occurrence: CH)
  Receive Date: 20200311
  Receipt Date: 20200408
  Transmission Date: 20200713
  Serious: Yes (Hospitalization, Other)
  Sender: FDA-Public Use
  Company Number: CH-ELI_LILLY_AND_COMPANY-CH202003000929

PATIENT
  Age: 74 Year
  Sex: Female
  Weight: 62 kg

DRUGS (8)
  1. NEXIUM [Concomitant]
     Active Substance: ESOMEPRAZOLE MAGNESIUM
     Indication: PROPHYLAXIS
     Dosage: 1 DOSAGE FORM, DAILY
     Route: 048
     Dates: start: 20191202
  2. NEXIUM [Concomitant]
     Active Substance: ESOMEPRAZOLE MAGNESIUM
     Indication: TENDON DISORDER
  3. OXYCONTIN [Concomitant]
     Active Substance: OXYCODONE HYDROCHLORIDE
     Indication: TENDON DISORDER
  4. FORSTEO 250UG/ML [Suspect]
     Active Substance: TERIPARATIDE
     Indication: OSTEOPOROSIS
     Dosage: UNK UNK, UNKNOWN
     Route: 058
     Dates: start: 20200203, end: 20200228
  5. IRFEN DOLO [Concomitant]
     Indication: TENDON DISORDER
     Dosage: 2 DOSAGE FORM, DAILY
     Route: 048
     Dates: start: 20191202
  6. MYDOCALM [TOLPERISONE HYDROCHLORIDE] [Concomitant]
     Active Substance: TOLPERISONE HYDROCHLORIDE
     Indication: LUMBAR VERTEBRAL FRACTURE
     Dosage: 1 DOSAGE FORM, DAILY
     Route: 048
     Dates: start: 20191202
  7. IRFEN DOLO [Concomitant]
     Indication: LUMBAR VERTEBRAL FRACTURE
  8. OXYCONTIN [Concomitant]
     Active Substance: OXYCODONE HYDROCHLORIDE
     Indication: LUMBAR VERTEBRAL FRACTURE
     Dosage: 2 DOSAGE FORM, DAILY
     Route: 048
     Dates: start: 20191202

REACTIONS (8)
  - Femur fracture [Unknown]
  - Calcinosis [Unknown]
  - Bone marrow oedema [Unknown]
  - Arthralgia [Unknown]
  - Chondrocalcinosis [Unknown]
  - Pain [Unknown]
  - Myalgia [Unknown]
  - Muscle oedema [Unknown]

NARRATIVE: CASE EVENT DATE: 20200207
